FAERS Safety Report 5589227-3 (Version None)
Quarter: 2008Q1

REPORT INFORMATION
  Report Type: 
  Country: None (occurrence: None)
  Receive Date: 20080114
  Receipt Date: 20080104
  Transmission Date: 20080703
  Serious: Yes (Other)
  Sender: FDA-Public Use
  Company Number: PHRM2008FR00498

PATIENT
  Age: 62 Year
  Sex: Female

DRUGS (1)
  1. ZOMETA [Suspect]
     Route: 042
     Dates: end: 20070910

REACTIONS (1)
  - OSTEONECROSIS [None]
